FAERS Safety Report 19490547 (Version 1)
Quarter: 2021Q3

REPORT INFORMATION
  Report Type: Spontaneous
  Country: CN (occurrence: CN)
  Receive Date: 20210705
  Receipt Date: 20210705
  Transmission Date: 20211014
  Serious: Yes (Other)
  Sender: FDA-Public Use
  Company Number: CN-JIANGSU HENGRUI MEDICINE CO., LTD.-2113462

PATIENT
  Age: 56 Year
  Sex: Male
  Weight: 57 kg

DRUGS (6)
  1. OXALIPLATIN INJECTION USP, 5 MG/ML, PACKAGED IN 50 MG/10 ML AND 100 MG [Suspect]
     Active Substance: OXALIPLATIN
     Indication: COLON CANCER RECURRENT
     Route: 041
     Dates: start: 20210430, end: 20210430
  2. BEVACIZUMAB. [Suspect]
     Active Substance: BEVACIZUMAB
     Route: 041
     Dates: start: 20210430, end: 20210430
  3. GLUCOSE INJECTION [Concomitant]
     Active Substance: DEXTROSE
     Route: 041
     Dates: start: 20210430, end: 20210430
  4. SINTILIMAB INJECTION [Suspect]
     Active Substance: SINTILIMAB
     Route: 041
     Dates: start: 20210430, end: 20210430
  5. CAPECITABINE. [Suspect]
     Active Substance: CAPECITABINE
     Route: 048
     Dates: start: 20210430, end: 20210514
  6. SODIUM CHLORIDE. [Concomitant]
     Active Substance: SODIUM CHLORIDE
     Route: 041
     Dates: start: 20210430, end: 20210430

REACTIONS (3)
  - Leukoplakia oral [Recovered/Resolved]
  - Renal impairment [Recovering/Resolving]
  - Full blood count decreased [Recovering/Resolving]

NARRATIVE: CASE EVENT DATE: 20210522
